FAERS Safety Report 16988488 (Version 1)
Quarter: 2019Q4

REPORT INFORMATION
  Report Type: Spontaneous
  Country: US (occurrence: US)
  Receive Date: 20191104
  Receipt Date: 20191104
  Transmission Date: 20200122
  Serious: No
  Sender: FDA-Public Use
  Company Number: US-CIPLA LTD.-2019US00793

PATIENT

DRUGS (4)
  1. GABAPENTIN. [Suspect]
     Active Substance: GABAPENTIN
     Indication: PAIN IN EXTREMITY
     Dosage: 300 MG, QD (ONCE A DAY AT NIGHT BEFORE BED)
     Route: 065
     Dates: start: 20170316, end: 20170903
  2. GABAPENTIN. [Suspect]
     Active Substance: GABAPENTIN
     Indication: NEURALGIA
  3. TRAZODONE [Concomitant]
     Active Substance: TRAZODONE HYDROCHLORIDE
     Indication: ATTENTION DEFICIT/HYPERACTIVITY DISORDER
     Dosage: 100 MG, AT NIGHT BEFORE BED
     Route: 065
  4. CLONAZEPAM. [Concomitant]
     Active Substance: CLONAZEPAM
     Indication: ATTENTION DEFICIT/HYPERACTIVITY DISORDER
     Dosage: 2 MG, BEFORE BED
     Route: 065

REACTIONS (14)
  - Dry mouth [Unknown]
  - Balance disorder [Recovered/Resolved]
  - Feeling abnormal [Recovered/Resolved]
  - Somnolence [Recovered/Resolved]
  - Chromaturia [Recovered/Resolved]
  - Feeling abnormal [Unknown]
  - Hangover [Unknown]
  - Lethargy [Unknown]
  - Urine analysis abnormal [Recovered/Resolved]
  - Asthenopia [Unknown]
  - Visual impairment [Unknown]
  - Disorientation [Unknown]
  - Emotional poverty [Unknown]
  - Thinking abnormal [Recovered/Resolved]

NARRATIVE: CASE EVENT DATE: 20170317
